FAERS Safety Report 4307879-2 (Version None)
Quarter: 2004Q1

REPORT INFORMATION
  Report Type: 
  Country: None (occurrence: None)
  Receive Date: 20040226
  Receipt Date: 20030916
  Transmission Date: 20041129
  Serious: Yes (Other)
  Sender: FDA-Public Use
  Company Number: 2001043075US

PATIENT
  Age: 59 Year
  Sex: Female
  Weight: 62.6 kg

DRUGS (7)
  1. CELEBREX [Suspect]
     Indication: OSTEOARTHRITIS
     Dosage: 200 MG, BID, ORAL
     Route: 048
     Dates: start: 20000701, end: 20001201
  2. CELEBREX [Suspect]
     Indication: OSTEOARTHRITIS
     Dosage: 200 MG, BID, ORAL
     Route: 048
     Dates: start: 20030911, end: 20030911
  3. CELEBREX [Suspect]
     Indication: OSTEOARTHRITIS
     Dosage: 200 MG, BID, ORAL
     Route: 048
     Dates: start: 20001201
  4. FEMHRT [Suspect]
     Indication: OESTROGEN THERAPY
     Dates: start: 20000801
  5. VITAMINS NOS (VITAMINS NOS) [Concomitant]
  6. STRATTERA [Concomitant]
  7. AVLIMIL [Concomitant]

REACTIONS (2)
  - ALOPECIA [None]
  - HYPERSENSITIVITY [None]
